FAERS Safety Report 7814178-0 (Version None)
Quarter: 2011Q4

REPORT INFORMATION
  Report Type: 
  Country: None (occurrence: None)
  Receive Date: 20111014
  Receipt Date: 20111011
  Transmission Date: 20120403
  Serious: Yes (Hospitalization)
  Sender: FDA-Public Use
  Company Number: JP-B.I. PHARMACEUTICALS,INC./RIDGEFIELD-2011-BP-22611NB

PATIENT
  Age: 90 Year
  Sex: Female

DRUGS (9)
  1. LASIX [Concomitant]
     Dosage: 20 MG
     Route: 048
     Dates: start: 20110512
  2. ASPENON [Suspect]
     Indication: ARRHYTHMIA
     Dosage: 20 MG
     Route: 048
     Dates: start: 20110512, end: 20110518
  3. ALDACTONE [Concomitant]
     Dosage: 25 MG
     Route: 048
     Dates: start: 20110512
  4. ZEPOLAS [Concomitant]
     Route: 062
  5. PRADAXA [Suspect]
     Indication: ATRIAL FIBRILLATION
     Dosage: 220 MG
     Route: 048
     Dates: start: 20110512, end: 20110518
  6. ALMARL [Concomitant]
     Dosage: 5 MG
     Route: 048
     Dates: start: 20100715
  7. DOXAZOSIN MESYLATE [Concomitant]
     Dosage: 2 MG
     Route: 048
     Dates: start: 20101021
  8. DILTIAZEM HCL [Suspect]
     Dosage: 200 MG
     Route: 048
     Dates: start: 20110512, end: 20110518
  9. VALSARTAN  AND HYDROCHLOROTHIAZIDE [Concomitant]
     Indication: HYPERTENSION
     Route: 048
     Dates: start: 20100902, end: 20110518

REACTIONS (3)
  - MOUTH HAEMORRHAGE [None]
  - RENAL FAILURE ACUTE [None]
  - BRADYCARDIA [None]
